FAERS Safety Report 26106007 (Version 1)
Quarter: 2025Q4

REPORT INFORMATION
  Report Type: Spontaneous
  Country: EU (occurrence: EU)
  Receive Date: 20251201
  Receipt Date: 20251201
  Transmission Date: 20260117
  Serious: Yes (Other)
  Sender: AUROBINDO
  Company Number: EU-DEXPHARM-2025-5146

PATIENT
  Sex: Male

DRUGS (11)
  1. CLOPIDOGREL [Interacting]
     Active Substance: CLOPIDOGREL BISULFATE
     Indication: Product used for unknown indication
     Dosage: 75 MILLIGRAM, ONCE A DAY (1-0-0)
     Route: 065
  2. ASPIRIN [Interacting]
     Active Substance: ASPIRIN
     Indication: Product used for unknown indication
     Dosage: 100 MILLIGRAM, ONCE A DAY (1-0-0)
  3. GINKGO BILOBA LEAF EXTRACT [Interacting]
     Active Substance: GINKGO BILOBA LEAF EXTRACT
     Indication: Prophylaxis
     Dosage: UNK
     Route: 065
  4. Metoprololsuccinat 95 mg [Concomitant]
     Indication: Product used for unknown indication
     Dosage: 47.5 MILLIGRAM (0.5/DAY) (0.5-0-0.5)
     Route: 065
  5. RAMIPRIL [Concomitant]
     Active Substance: RAMIPRIL
     Indication: Product used for unknown indication
     Dosage: 5 MILLIGRAM, ONCE A DAY (1-0-0)
     Route: 065
  6. ATORVASTATIN [Concomitant]
     Active Substance: ATORVASTATIN
     Indication: Product used for unknown indication
     Dosage: 20 MILLIGRAM, ONCE A DAY (0-0-1)
     Route: 065
  7. PANTOPRAZOLE SODIUM [Concomitant]
     Active Substance: PANTOPRAZOLE SODIUM
     Indication: Product used for unknown indication
     Dosage: 20 MILLIGRAM, ONCE A DAY (0-0-1)
     Route: 065
  8. METAMIZOLE [Concomitant]
     Active Substance: METAMIZOLE
     Indication: Product used for unknown indication
     Dosage: 500 MILLIGRAM, EVERY WEEK (ONLY ONE TABLET, AT MOST ONCE PER WEEK)
  9. Isosorbiddinitrat-Sublingualtabletten [Concomitant]
     Indication: Angina pectoris
     Dosage: UNK
  10. Metamizol-Tropfen [Concomitant]
     Indication: Product used for unknown indication
     Dosage: 20 GTT DROPS, AS NECESSARY (20 DROPS OF METAMIZOL 500 MG/ML, IF NECESSARY, AT MOST ONCE PER WEEK)
     Route: 065
  11. Tetryzolin-Augentropfen [Concomitant]
     Indication: Dry eye
     Dosage: UNK
     Route: 065

REACTIONS (6)
  - Angina pectoris [Not Recovered/Not Resolved]
  - Fall [Recovered/Resolved]
  - Haematoma [Unknown]
  - Dry mouth [Not Recovered/Not Resolved]
  - Labelled drug-drug interaction issue [Unknown]
  - Drug interaction [Unknown]
